FAERS Safety Report 21774058 (Version 1)
Quarter: 2022Q4

REPORT INFORMATION
  Report Type: Spontaneous
  Country: US (occurrence: None)
  Receive Date: 20221223
  Receipt Date: 20221223
  Transmission Date: 20230113
  Serious: No
  Sender: FDA-Public Use
  Company Number: None

PATIENT

DRUGS (2)
  1. EVEROLIMUS [Suspect]
     Active Substance: EVEROLIMUS
     Route: 048
  2. EXEMESTANE [Suspect]
     Active Substance: EXEMESTANE
     Route: 048

REACTIONS (1)
  - Intercepted product dispensing error [None]
